FAERS Safety Report 9546151 (Version 4)
Quarter: 2014Q1

REPORT INFORMATION
  Report Type: Report from Study
  Country: CA (occurrence: CA)
  Receive Date: 20130923
  Receipt Date: 20140317
  Transmission Date: 20141002
  Serious: Yes (Hospitalization, Other)
  Sender: FDA-Public Use
  Company Number: CA-ABBVIE-13P-028-1144597-00

PATIENT
  Age: 77 Year
  Sex: Male

DRUGS (9)
  1. HUMIRA [Suspect]
     Indication: PRODUCT USED FOR UNKNOWN INDICATION
     Route: 058
     Dates: start: 20120328, end: 20130328
  2. ACCUPRIL [Concomitant]
     Indication: PRODUCT USED FOR UNKNOWN INDICATION
  3. ATORVASTATIN [Concomitant]
     Indication: PRODUCT USED FOR UNKNOWN INDICATION
  4. CELEBREX [Concomitant]
     Indication: PRODUCT USED FOR UNKNOWN INDICATION
  5. MYLAN NITRO [Concomitant]
     Indication: PRODUCT USED FOR UNKNOWN INDICATION
  6. NOVO DIALTIAZEM [Concomitant]
     Indication: PRODUCT USED FOR UNKNOWN INDICATION
  7. OMEPRAZOLE [Concomitant]
     Indication: PRODUCT USED FOR UNKNOWN INDICATION
  8. PRADAX [Concomitant]
     Indication: PRODUCT USED FOR UNKNOWN INDICATION
  9. TENORMIN [Concomitant]
     Indication: PRODUCT USED FOR UNKNOWN INDICATION

REACTIONS (11)
  - Peripheral ischaemia [Recovered/Resolved]
  - Pallor [Unknown]
  - Peripheral coldness [Unknown]
  - Compartment syndrome [Unknown]
  - Cellulitis [Unknown]
  - Soft tissue necrosis [Recovered/Resolved]
  - Fall [Unknown]
  - Facial bones fracture [Unknown]
  - Wound [Unknown]
  - Delirium [Recovered/Resolved]
  - Confusional state [Recovered/Resolved]
